FAERS Safety Report 21024059 (Version 1)
Quarter: 2022Q2

REPORT INFORMATION
  Report Type: Report from Study
  Country: CN (occurrence: CN)
  Receive Date: 20220629
  Receipt Date: 20220629
  Transmission Date: 20220721
  Serious: Yes (Other)
  Sender: FDA-Public Use
  Company Number: CN-FERRINGPH-2022FE03204

PATIENT

DRUGS (3)
  1. ANHYDROUS CITRIC ACID\MAGNESIUM OXIDE\SODIUM PICOSULFATE [Suspect]
     Active Substance: ANHYDROUS CITRIC ACID\MAGNESIUM OXIDE\SODIUM PICOSULFATE
     Indication: Bowel preparation
     Dosage: 1 DOSAGE FORM, 2 TIMES DAILY
     Route: 048
     Dates: start: 20220615, end: 20220616
  2. PINAVERIUM BROMIDE [Concomitant]
     Active Substance: PINAVERIUM BROMIDE
     Indication: Functional gastrointestinal disorder
     Dosage: 50 MG, 3 TIMES DAILY
     Route: 048
     Dates: start: 20220612, end: 20220615
  3. BACILLUS LICHENIFORMIS CAPSULE,LIVE [Concomitant]
     Indication: Functional gastrointestinal disorder
     Dosage: 0.5 G, 3 TIMES DAILY
     Route: 048
     Dates: start: 20220612, end: 20220615

REACTIONS (7)
  - Syncope [Recovering/Resolving]
  - Palpitations [Recovering/Resolving]
  - Chest discomfort [Recovering/Resolving]
  - Amaurosis [Recovering/Resolving]
  - Asthenia [Recovering/Resolving]
  - Dizziness [Recovering/Resolving]
  - Vomiting [Recovering/Resolving]

NARRATIVE: CASE EVENT DATE: 20220615
